FAERS Safety Report 18408493 (Version 1)
Quarter: 2020Q4

REPORT INFORMATION
  Report Type: Report from Study
  Country: CA (occurrence: CA)
  Receive Date: 20201020
  Receipt Date: 20201020
  Transmission Date: 20210114
  Serious: Yes (Hospitalization)
  Sender: FDA-Public Use
  Company Number: CA-HLS-202000298

PATIENT
  Sex: Male

DRUGS (7)
  1. ENTACAPONE. [Concomitant]
     Active Substance: ENTACAPONE
     Route: 048
  2. CLOZARIL [Suspect]
     Active Substance: CLOZAPINE
     Indication: PSYCHOTIC DISORDER
     Route: 048
     Dates: start: 20190417, end: 20200101
  3. CLOZARIL [Suspect]
     Active Substance: CLOZAPINE
     Indication: PSYCHOTIC DISORDER
     Route: 048
     Dates: start: 20190418, end: 202004
  4. LEVOCARBIDOPA [Concomitant]
     Indication: PARKINSON^S DISEASE
     Dosage: 3 TABS TID
     Route: 048
  5. CLOZARIL [Suspect]
     Active Substance: CLOZAPINE
     Indication: PARKINSON^S DISEASE
     Route: 048
     Dates: start: 20190418, end: 202004
  6. CLOZARIL [Suspect]
     Active Substance: CLOZAPINE
     Indication: PARKINSON^S DISEASE
     Route: 048
     Dates: start: 20190417, end: 20200101
  7. FLUDROCORTISONE [Concomitant]
     Active Substance: FLUDROCORTISONE
     Indication: ORTHOSTATIC HYPOTENSION
     Route: 048

REACTIONS (9)
  - Aggression [Unknown]
  - Neutrophil count decreased [Recovered/Resolved]
  - Psychiatric decompensation [Recovered/Resolved]
  - Hypotension [Unknown]
  - Sedation [Unknown]
  - White blood cell count decreased [Recovered/Resolved]
  - Off label use [Unknown]
  - Aggression [Recovered/Resolved]
  - Rib fracture [Recovered/Resolved]
